FAERS Safety Report 17644134 (Version 1)
Quarter: 2020Q2

REPORT INFORMATION
  Report Type: Spontaneous
  Country: US (occurrence: US)
  Receive Date: 20200407
  Receipt Date: 20200407
  Transmission Date: 20200713
  Serious: No
  Sender: FDA-Public Use
  Company Number: None

PATIENT
  Age: 63 Year
  Sex: Male

DRUGS (1)
  1. CAPECITABINE TAB 500MG [Suspect]
     Active Substance: CAPECITABINE
     Route: 048
     Dates: start: 202002

REACTIONS (8)
  - Yellow skin [None]
  - Inflammation [None]
  - Peripheral swelling [None]
  - Nervousness [None]
  - Paraesthesia [None]
  - Lacrimal disorder [None]
  - Erythema [None]
  - Palpitations [None]

NARRATIVE: CASE EVENT DATE: 20200407
